FAERS Safety Report 6050201-4 (Version None)
Quarter: 2009Q1

REPORT INFORMATION
  Report Type: 
  Country: None (occurrence: None)
  Receive Date: 20090121
  Receipt Date: 20090106
  Transmission Date: 20090719
  Serious: Yes (Death)
  Sender: FDA-Public Use
  Company Number: 2009000038

PATIENT
  Age: 51 Year
  Sex: Male

DRUGS (3)
  1. ERLOTINIB (ERLOTINIB) (TABLET) (ERLOTINIB) [Suspect]
     Indication: NON-SMALL CELL LUNG CANCER
     Dosage: 150 MG, QD, ORAL
     Route: 048
     Dates: start: 20081126, end: 20081219
  2. DIGOXIN [Concomitant]
  3. BELOC-ZOK (METOPROLOL) [Concomitant]

REACTIONS (2)
  - CARDIAC FAILURE [None]
  - FALL [None]
